FAERS Safety Report 8736616 (Version 2)
Quarter: 2012Q4

REPORT INFORMATION
  Report Type: Report from Study
  Country: AU (occurrence: AU)
  Receive Date: 20120822
  Receipt Date: 20121005
  Transmission Date: 20130627
  Serious: Yes (Death)
  Sender: FDA-Public Use
  Company Number: AU-GLAXOSMITHKLINE-B0824416A

PATIENT
  Age: 43 Year
  Sex: Male

DRUGS (5)
  1. VOTRIENT [Suspect]
     Indication: METASTATIC RENAL CELL CARCINOMA
     Dosage: 800MG Per day
     Route: 048
     Dates: start: 20120721, end: 20120813
  2. TEMSIROLIMUS [Concomitant]
  3. OXYCONTIN [Concomitant]
     Indication: PAIN
     Dosage: 10MG per day
  4. PREDNISOLONE [Concomitant]
     Indication: APPETITE DISORDER
  5. LORAZEPAM [Concomitant]
     Indication: ANXIETY

REACTIONS (1)
  - Disease progression [Fatal]
